FAERS Safety Report 13820903 (Version 1)
Quarter: 2017Q3

REPORT INFORMATION
  Report Type: Spontaneous
  Country: US (occurrence: US)
  Receive Date: 20170801
  Receipt Date: 20170801
  Transmission Date: 20171127
  Serious: No
  Sender: FDA-Public Use
  Company Number: US-GLENMARK PHARMACEUTICALS-2016GMK025534

PATIENT

DRUGS (5)
  1. MUPIROCIN. [Suspect]
     Active Substance: MUPIROCIN
     Indication: FLUSHING
     Dosage: UNK, BID
     Route: 045
     Dates: start: 201507, end: 201511
  2. GABAPENTIN. [Concomitant]
     Active Substance: GABAPENTIN
     Indication: PARAESTHESIA
     Dosage: 900 MG BY MOUTH
     Route: 048
  3. TAMSULOSIN [Concomitant]
     Active Substance: TAMSULOSIN
     Indication: PROSTATIC DISORDER
     Dosage: 40 MG, BY MOUTH
     Route: 048
  4. MUPIROCIN. [Suspect]
     Active Substance: MUPIROCIN
     Indication: PAIN IN EXTREMITY
     Dosage: UNK, BID
     Route: 061
     Dates: start: 20161219, end: 20161220
  5. FINASTERIDE. [Concomitant]
     Active Substance: FINASTERIDE
     Indication: PROSTATIC DISORDER
     Dosage: 5 MG (15 MG PER WEEK) BY MOUTH
     Route: 048

REACTIONS (4)
  - Incorrect route of drug administration [Unknown]
  - Diarrhoea [Recovered/Resolved]
  - Off label use [Unknown]
  - Incorrect drug administration duration [Unknown]

NARRATIVE: CASE EVENT DATE: 201507
